FAERS Safety Report 25226381 (Version 1)
Quarter: 2025Q2

REPORT INFORMATION
  Report Type: Report from Study
  Country: CL (occurrence: CL)
  Receive Date: 20250422
  Receipt Date: 20250422
  Transmission Date: 20250716
  Serious: Yes (Other)
  Sender: SANDOZ
  Company Number: CL-SANDOZ-SDZ2024CL096857

PATIENT
  Sex: Male

DRUGS (2)
  1. OMNITROPE [Suspect]
     Active Substance: SOMATROPIN
     Indication: Epiphyseal disorder
     Dosage: 1.0 MG QD
     Route: 058
     Dates: start: 20241121
  2. OMNITROPE [Suspect]
     Active Substance: SOMATROPIN
     Dosage: 090 IU, QD, (CONCENTRATION 10 MG)
     Route: 058
     Dates: start: 20241121

REACTIONS (2)
  - Coeliac disease [Unknown]
  - Off label use [Unknown]
